FAERS Safety Report 4550669-6 (Version None)
Quarter: 2005Q1

REPORT INFORMATION
  Report Type: 
  Country: None (occurrence: None)
  Receive Date: 20050112
  Receipt Date: 20040407
  Transmission Date: 20050727
  Serious: Yes (Hospitalization)
  Sender: FDA-Public Use
  Company Number: US-ABBOTT-04P-163-0257031-00

PATIENT
  Sex: Female
  Weight: 63.56 kg

DRUGS (8)
  1. HUMIRA [Suspect]
     Indication: RHEUMATOID ARTHRITIS
     Route: 058
     Dates: start: 20031201, end: 20040401
  2. HUMIRA [Suspect]
     Route: 058
     Dates: start: 20040401
  3. BUCINDOLOL HYDROCHLORIDE [Concomitant]
     Indication: RHEUMATOID ARTHRITIS
     Route: 048
  4. ESTROGENS CONJUGATED [Concomitant]
     Indication: HYSTERECTOMY
     Route: 048
     Dates: start: 19690101
  5. METHOTREXATE [Concomitant]
     Indication: RHEUMATOID ARTHRITIS
     Route: 048
     Dates: start: 19960101
  6. LEUCOVOR [Concomitant]
     Indication: RHEUMATOID ARTHRITIS
     Route: 048
     Dates: start: 19960101
  7. PREDNISONE [Concomitant]
     Indication: RHEUMATOID ARTHRITIS
     Route: 048
  8. GLUCOSAMINE W/CHONDROITIN SULFATES [Concomitant]
     Indication: BONE DISORDER
     Route: 048

REACTIONS (2)
  - BACK PAIN [None]
  - NERVE COMPRESSION [None]
